FAERS Safety Report 8251195-3 (Version None)
Quarter: 2012Q1

REPORT INFORMATION
  Report Type: 
  Country: None (occurrence: None)
  Receive Date: 20120321
  Receipt Date: 20100604
  Transmission Date: 20120608
  Serious: No
  Sender: FDA-Public Use
  Company Number: PHHY2010US36011

PATIENT
  Age: 24 Year
  Sex: Female
  Weight: 109.3 kg

DRUGS (3)
  1. ILARIS [Suspect]
     Dosage: 150 MG, SUBCUTANEOUS
     Route: 058
     Dates: start: 20100401
  2. PAXIL [Concomitant]
  3. TRI-SPRINTEC (TRI-SPRINTEC) [Concomitant]

REACTIONS (6)
  - SKIN DISCOLOURATION [None]
  - OEDEMA PERIPHERAL [None]
  - SKIN EXFOLIATION [None]
  - ERYTHEMA [None]
  - TENDERNESS [None]
  - PRURITUS [None]
